FAERS Safety Report 7835725-9 (Version None)
Quarter: 2011Q4

REPORT INFORMATION
  Report Type: 
  Country: None (occurrence: None)
  Receive Date: 20111024
  Receipt Date: 20111021
  Transmission Date: 20120403
  Serious: Yes (Other)
  Sender: FDA-Public Use
  Company Number: IT-PFIZER INC-2011165601

PATIENT
  Age: 75 Year
  Sex: Male

DRUGS (3)
  1. ATORVASTATIN CALCIUM [Suspect]
     Indication: BLOOD CHOLESTEROL INCREASED
     Dosage: 10 MG, 1X/DAY
  2. ATORVASTATIN CALCIUM [Suspect]
     Indication: BLOOD TRIGLYCERIDES INCREASED
  3. TENSOZIDE [Concomitant]
     Indication: HYPERTENSION
     Dosage: 20 MG + 12.5 MG, 1 TABLET IN THE MORNING

REACTIONS (1)
  - PROSTATIC SPECIFIC ANTIGEN INCREASED [None]
